FAERS Safety Report 7316101-4 (Version None)
Quarter: 2011Q1

REPORT INFORMATION
  Report Type: 
  Country: None (occurrence: None)
  Receive Date: 20110225
  Receipt Date: 20110215
  Transmission Date: 20110831
  Serious: Yes (Hospitalization)
  Sender: FDA-Public Use
  Company Number: US-ELI_LILLY_AND_COMPANY-US201102004931

PATIENT
  Sex: Female

DRUGS (4)
  1. PROTONIX [Concomitant]
  2. FORTEO [Suspect]
     Indication: OSTEOPOROSIS
     Dosage: 20 UG, DAILY (1/D)
     Dates: start: 20101201, end: 20110212
  3. FORTEO [Suspect]
     Dosage: 20 UG, DAILY (1/D)
     Dates: start: 20110214
  4. RAMIPRIL [Concomitant]

REACTIONS (3)
  - FATIGUE [None]
  - MUSCLE SPASMS [None]
  - HYPOAESTHESIA [None]
